FAERS Safety Report 9587162 (Version 2)
Quarter: 2013Q4

REPORT INFORMATION
  Report Type: Spontaneous
  Country: US (occurrence: US)
  Receive Date: 20131003
  Receipt Date: 20131003
  Transmission Date: 20140711
  Serious: Yes (Hospitalization)
  Sender: FDA-Public Use
  Company Number: US-BAXTER-2013BAX037155

PATIENT
  Age: 83 Year
  Sex: Male

DRUGS (3)
  1. DIANEAL LOW CALCIUM [Suspect]
     Indication: PERITONEAL DIALYSIS
     Route: 033
     Dates: start: 20120730
  2. EPOGEN [Concomitant]
     Indication: ANAEMIA
  3. VENOFER [Concomitant]
     Indication: ANAEMIA

REACTIONS (1)
  - Arterial occlusive disease [Recovered/Resolved]
